FAERS Safety Report 6486948-5 (Version None)
Quarter: 2009Q4

REPORT INFORMATION
  Report Type: 
  Country: None (occurrence: None)
  Receive Date: 20091210
  Receipt Date: 20091105
  Transmission Date: 20100525
  Serious: Yes (Other)
  Sender: FDA-Public Use
  Company Number: PHHY2009FR53367

PATIENT
  Sex: Female

DRUGS (7)
  1. LOPRESSOR [Suspect]
     Dosage: UNK
  2. AROMASIN [Suspect]
  3. ALDACTONE [Concomitant]
  4. LEVOTHYROXINE SODIUM [Concomitant]
     Dosage: 75 MG, QD
  5. MOPRAL [Concomitant]
     Dosage: 20 MG, UNK
  6. EZETROL [Concomitant]
  7. PREVISCAN [Concomitant]
     Dosage: 20 MG, UNK

REACTIONS (5)
  - DIZZINESS [None]
  - FATIGUE [None]
  - MYALGIA [None]
  - PULMONARY EMBOLISM [None]
  - SOMNOLENCE [None]
